FAERS Safety Report 12935798 (Version 1)
Quarter: 2016Q4

REPORT INFORMATION
  Report Type: Spontaneous
  Country: FR (occurrence: FR)
  Receive Date: 20161114
  Receipt Date: 20161114
  Transmission Date: 20170207
  Serious: Yes (Hospitalization)
  Sender: FDA-Public Use
  Company Number: FR-PFIZER INC-2016511493

PATIENT
  Age: 68 Year
  Sex: Male

DRUGS (14)
  1. DALACINE [Suspect]
     Active Substance: CLINDAMYCIN HYDROCHLORIDE
     Indication: DERMO-HYPODERMITIS
     Dosage: UNK
     Route: 048
     Dates: start: 20160905, end: 20160909
  2. AUGMENTIN [Suspect]
     Active Substance: AMOXICILLIN\CLAVULANATE POTASSIUM
     Indication: DERMO-HYPODERMITIS
     Dosage: 3 G, DAILY
     Route: 048
     Dates: start: 20160912, end: 20160914
  3. TAHOR [Concomitant]
     Active Substance: ATORVASTATIN CALCIUM
     Dosage: 10 MG, 1X/DAY IN THE EVENING
  4. CEFAZOLIN [Concomitant]
     Active Substance: CEFAZOLIN
     Dosage: UNK
     Dates: start: 20160909
  5. BISOPROLOL [Concomitant]
     Active Substance: BISOPROLOL
     Dosage: 10 MG, 1X/DAY IN THE MORNING
  6. CORDARONE [Concomitant]
     Active Substance: AMIODARONE HYDROCHLORIDE
     Dosage: 200 MG, 1X/DAY IN THE MORNING
  7. PANTOPRAZOLE [Concomitant]
     Active Substance: PANTOPRAZOLE SODIUM
     Dosage: 20 MG, 1X/DAY IN THE EVENING
  8. DALACINE [Suspect]
     Active Substance: CLINDAMYCIN HYDROCHLORIDE
     Indication: ERYSIPELAS
     Dosage: 1800 MG, DAILY
     Route: 048
     Dates: start: 20160912, end: 20160914
  9. ROCEPHINE [Concomitant]
     Active Substance: CEFTRIAXONE SODIUM
     Indication: ERYSIPELAS
     Dosage: UNK
     Dates: start: 20160905, end: 20160909
  10. INSPRA [Concomitant]
     Active Substance: EPLERENONE
     Dosage: 25 MG, 1X/DAY IN THE MORNING
  11. GLICLAZIDE [Concomitant]
     Active Substance: GLICLAZIDE
     Dosage: 30 MG, 1X/DAY IN THE MORNING
  12. LASILIX [Concomitant]
     Active Substance: FUROSEMIDE
     Dosage: 120 MG, DAILY (2 TABLETS IN THE MORNING AND 1 TABLET AT NOON)
  13. RAMIPRIL. [Concomitant]
     Active Substance: RAMIPRIL
     Dosage: 10 MG, 1X/DAY IN THE MORNING
  14. PREVISCAN [Concomitant]
     Active Substance: FLUINDIONE
     Dosage: 10 MG, 1X/DAY (1/2 TABLET IN THE EVENING FOR INR BETWEEN 2 AND 3)

REACTIONS (2)
  - Rash maculo-papular [Unknown]
  - Purpura [Unknown]

NARRATIVE: CASE EVENT DATE: 20160912
